FAERS Safety Report 11689519 (Version 1)
Quarter: 2015Q4

REPORT INFORMATION
  Report Type: Spontaneous
  Country: FR (occurrence: FR)
  Receive Date: 20151102
  Receipt Date: 20151102
  Transmission Date: 20160304
  Serious: Yes (Hospitalization, Other)
  Sender: FDA-Public Use
  Company Number: FR-PFIZER INC-2015362552

PATIENT
  Age: 84 Year
  Sex: Male

DRUGS (8)
  1. CORTANCYL [Concomitant]
     Active Substance: PREDNISONE
     Dosage: UNK
  2. KARDEGIC [Concomitant]
     Active Substance: ASPIRIN LYSINE
     Dosage: UNK
  3. GASTRON [Concomitant]
     Dosage: UNK
  4. CORDARONE [Suspect]
     Active Substance: AMIODARONE HYDROCHLORIDE
     Dosage: 200 MG, UNK, (5D/7)
     Route: 048
     Dates: start: 20150613, end: 20150923
  5. MIANSERINE [Concomitant]
     Active Substance: MIANSERIN HYDROCHLORIDE
     Dosage: UNK
  6. INEXIUM [Concomitant]
     Active Substance: ESOMEPRAZOLE
     Dosage: UNK
  7. FORLAX [Concomitant]
     Active Substance: POLYETHYLENE GLYCOL 4000
     Dosage: UNK
  8. FOSAMAX [Concomitant]
     Active Substance: ALENDRONATE SODIUM
     Dosage: UNK

REACTIONS (2)
  - Dermatitis exfoliative [Recovered/Resolved]
  - Zinc deficiency [Recovered/Resolved]

NARRATIVE: CASE EVENT DATE: 20150825
